FAERS Safety Report 5403852-1 (Version None)
Quarter: 2007Q3

REPORT INFORMATION
  Report Type: 
  Country: None (occurrence: None)
  Receive Date: 20070802
  Receipt Date: 20070727
  Transmission Date: 20080115
  Serious: Yes (Other)
  Sender: FDA-Public Use
  Company Number: US-AVENTIS-200716914GDDC

PATIENT
  Age: 41 Year
  Sex: Female

DRUGS (7)
  1. INSULIN GLARGINE [Suspect]
     Indication: DIABETES MELLITUS
     Route: 058
     Dates: start: 20010101
  2. LISPRO [Suspect]
     Indication: DIABETES MELLITUS
     Route: 058
     Dates: start: 20061102
  3. HUMALOG [Suspect]
  4. ALTACE [Concomitant]
  5. COREG [Concomitant]
  6. ZOCOR [Concomitant]
  7. ASPIRIN [Concomitant]

REACTIONS (2)
  - HYPOGLYCAEMIA [None]
  - ROAD TRAFFIC ACCIDENT [None]
